FAERS Safety Report 12656134 (Version 1)
Quarter: 2016Q3

REPORT INFORMATION
  Report Type: Report from Study
  Country: CN (occurrence: CN)
  Receive Date: 20160816
  Receipt Date: 20160816
  Transmission Date: 20161109
  Serious: Yes (Death, Other)
  Sender: FDA-Public Use
  Company Number: CN-ASTELLAS-2016US031424

PATIENT
  Sex: Male

DRUGS (1)
  1. ERLOTINIB [Suspect]
     Active Substance: ERLOTINIB
     Indication: NON-SMALL CELL LUNG CANCER
     Route: 048
     Dates: start: 20140104

REACTIONS (5)
  - Non-small cell lung cancer [Unknown]
  - Vascular occlusion [Fatal]
  - Platelet count decreased [Fatal]
  - Benign lung neoplasm [Unknown]
  - Malignant neoplasm progression [Unknown]
